FAERS Safety Report 8570199 (Version 4)
Quarter: 2012Q4

REPORT INFORMATION
  Report Type: 
  Country: JP (occurrence: JP)
  Receive Date: 20120521
  Receipt Date: 20121210
  Transmission Date: 20130627
  Serious: Yes (Other)
  Sender: FDA-Public Use
  Company Number: JP-AMGEN-JPNSP2012030791

PATIENT
  Age: 64 Year
  Sex: Female

DRUGS (7)
  1. ENBREL [Suspect]
     Indication: RHEUMATOID ARTHRITIS
     Dosage: 50 mg, weekly
     Route: 058
     Dates: start: 20111219, end: 20121005
  2. ENBREL [Interacting]
     Dosage: 25 mg, weekly
     Route: 058
     Dates: start: 20121012
  3. AZULFIDINE EN [Interacting]
     Indication: RHEUMATOID ARTHRITIS
     Dosage: 1000 mg, UNK
     Dates: end: 201204
  4. AZULFIDINE EN [Interacting]
     Dosage: 250 mg, 2x/day
     Route: 048
     Dates: start: 20100924, end: 20101112
  5. AZULFIDINE EN [Interacting]
     Dosage: 500 mg, 2x/day
     Route: 048
     Dates: start: 20101124, end: 20120427
  6. FOLIAMIN [Concomitant]
     Dosage: 5 mg, UNK
  7. RHEUMATREX                         /00113801/ [Concomitant]
     Dosage: 10 mg, 2x/week
     Route: 048
     Dates: start: 20110121, end: 20120804

REACTIONS (6)
  - White blood cell count decreased [Recovered/Resolved]
  - Drug interaction [Recovered/Resolved]
  - Neutrophil count decreased [Recovered/Resolved]
  - White blood cell count decreased [Recovered/Resolved]
  - White blood cell count decreased [Recovering/Resolving]
  - Nasopharyngitis [Recovered/Resolved]
